FAERS Safety Report 9333363 (Version 1)
Quarter: 2013Q2

REPORT INFORMATION
  Report Type: Spontaneous
  Country: US (occurrence: US)
  Receive Date: 20130606
  Receipt Date: 20130606
  Transmission Date: 20140414
  Serious: Yes (Death, Other)
  Sender: FDA-Public Use
  Company Number: US-MPIJNJ-2013-04212

PATIENT
  Age: 43 Year
  Sex: Male

DRUGS (17)
  1. VELCADE [Suspect]
     Indication: PLASMA CELL MYELOMA
     Dosage: 1 MG/M2, CYCLIC
     Route: 065
  2. THALIDOMIDE [Suspect]
     Indication: PLASMA CELL MYELOMA
     Dosage: 200 MG, CYCLIC
     Route: 065
  3. DEXAMETHASONE [Suspect]
     Indication: PLASMA CELL MYELOMA
     Dosage: 40 MG, CYCLIC
     Route: 065
  4. CISPLATIN [Suspect]
     Indication: PLASMA CELL MYELOMA
     Dosage: 10 MG/M2, CYCLIC
     Route: 042
  5. DOXORUBICIN [Suspect]
     Indication: PLASMA CELL MYELOMA
     Dosage: 10 MG/M2, CYCLIC
     Route: 042
  6. CYCLOPHOSPHAMIDE [Suspect]
     Indication: PLASMA CELL MYELOMA
     Dosage: 400 MG/M2, CYCLIC
     Route: 042
  7. ETOPOSIDE [Suspect]
     Indication: PLASMA CELL MYELOMA
     Dosage: 40 MG/M2, CYCLIC
     Route: 042
  8. FILGRASTIM [Suspect]
     Indication: PLASMA CELL MYELOMA
     Dosage: 8 MG/KG, BID
     Route: 065
  9. MELPHALAN [Suspect]
     Indication: PLASMA CELL MYELOMA
     Dosage: 200 MG/M2, UNK
     Route: 065
  10. TRUVADA                            /01398801/ [Concomitant]
     Indication: HIV INFECTION
  11. DARUNAVIR [Concomitant]
     Indication: HIV INFECTION
  12. RITONAVIR [Concomitant]
     Indication: HIV INFECTION
  13. RALTEGRAVIR [Concomitant]
     Indication: HIV INFECTION
  14. ZIDOVUDINE [Concomitant]
     Indication: HIV INFECTION
  15. LEVOFLOXACIN [Concomitant]
     Indication: PROPHYLAXIS
  16. FLUCONAZOLE [Concomitant]
     Indication: PROPHYLAXIS
  17. ACYCLOVIR                          /00587301/ [Concomitant]
     Indication: PROPHYLAXIS

REACTIONS (3)
  - Death [Fatal]
  - Colitis [Unknown]
  - Neuropathy peripheral [Unknown]
